FAERS Safety Report 7496554-1 (Version None)
Quarter: 2011Q2

REPORT INFORMATION
  Report Type: 
  Country: None (occurrence: None)
  Receive Date: 20110520
  Receipt Date: 20110520
  Transmission Date: 20111010
  Serious: No
  Sender: FDA-Public Use
  Company Number: None

PATIENT
  Age: 20 Year
  Sex: Male
  Weight: 74.8435 kg

DRUGS (1)
  1. CELEXA [Suspect]
     Indication: DEPRESSION
     Dosage: 20 1 ORAL
     Route: 048
     Dates: start: 20110301, end: 20110401

REACTIONS (4)
  - ABNORMAL BEHAVIOUR [None]
  - IMPRISONMENT [None]
  - MEMORY IMPAIRMENT [None]
  - ANGER [None]
